FAERS Safety Report 6655365-7 (Version None)
Quarter: 2010Q1

REPORT INFORMATION
  Report Type: 
  Country: None (occurrence: None)
  Receive Date: 20100329
  Receipt Date: 20100322
  Transmission Date: 20100710
  Serious: Yes (Hospitalization)
  Sender: FDA-Public Use
  Company Number: PHHO2010DE04524

PATIENT
  Age: 49 Year
  Sex: Female
  Weight: 57 kg

DRUGS (5)
  1. ZOLEDRONATE T29581+SOLINJ+BM [Suspect]
     Indication: BREAST CANCER
     Dosage: 4 MG, EVERY 3 MONTHS FOR 2 YEARS
     Route: 042
     Dates: start: 20100212, end: 20100212
  2. TAMOXIFEN CITRATE [Suspect]
     Indication: BREAST CANCER
     Dosage: 25 MG, UNK
     Route: 048
  3. VITAMIN D [Concomitant]
  4. CALCIUM [Concomitant]
  5. CIPRALEX [Concomitant]
     Indication: DEPRESSION

REACTIONS (2)
  - JAW LESION EXCISION [None]
  - OSTEONECROSIS [None]
